FAERS Safety Report 18525003 (Version 1)
Quarter: 2020Q4

REPORT INFORMATION
  Report Type: Spontaneous
  Country: US (occurrence: US)
  Receive Date: 20201119
  Receipt Date: 20201119
  Transmission Date: 20210114
  Serious: No
  Sender: FDA-Public Use
  Company Number: US-BIOGEN-2020BI00944879

PATIENT
  Sex: Male

DRUGS (2)
  1. SPINRAZA [Suspect]
     Active Substance: NUSINERSEN
     Indication: SPINAL MUSCULAR ATROPHY
     Dosage: PHYSICIAN TO ADMINISTER 12MG/5ML INTRATHECALLY ONCE EVERY 4 MONTHS.
     Route: 037
  2. EVRYSDI [Suspect]
     Active Substance: RISDIPLAM
     Indication: PRODUCT USED FOR UNKNOWN INDICATION
     Dosage: 60 MG/80 ML ORAL SOLUTION
     Route: 048

REACTIONS (3)
  - Pneumonia [Unknown]
  - Vomiting [Not Recovered/Not Resolved]
  - Gastrooesophageal reflux disease [Not Recovered/Not Resolved]
